FAERS Safety Report 18610026 (Version 1)
Quarter: 2020Q4

REPORT INFORMATION
  Report Type: Spontaneous
  Country: US (occurrence: US)
  Receive Date: 20201214
  Receipt Date: 20201214
  Transmission Date: 20210114
  Serious: No
  Sender: FDA-Public Use
  Company Number: US-009507513-2012USA003552

PATIENT
  Sex: Male

DRUGS (17)
  1. PRINIVIL [Suspect]
     Active Substance: LISINOPRIL
     Dosage: 10 MILLIGRAM, EVERY MORNING AND 5 MG EVERY AFTERNOON
  2. KEYTRUDA [Concomitant]
     Active Substance: PEMBROLIZUMAB
     Indication: BRAIN NEOPLASM MALIGNANT
     Dosage: 200 MILLIGRAM, EVERY 3 WEEKS, 1 OF 6 CYCLES
     Route: 042
     Dates: start: 20200226
  3. TEMODAR [Concomitant]
     Active Substance: TEMOZOLOMIDE
     Dosage: UNK
     Dates: start: 20190204, end: 20190320
  4. DECADRON [Concomitant]
     Active Substance: DEXAMETHASONE
     Dosage: 2 MILLIGRAM, QD
  5. KEPPRA [Concomitant]
     Active Substance: LEVETIRACETAM
     Dosage: 1250 MILLIGRAM, Q AM
  6. PRINIVIL [Suspect]
     Active Substance: LISINOPRIL
     Dosage: 10 MILLIGRAM, DAILY
     Route: 048
     Dates: start: 20200214
  7. TEMODAR [Concomitant]
     Active Substance: TEMOZOLOMIDE
     Dosage: 150-200 MG/M2, EVERY 4 WEEKS
     Dates: start: 20190422, end: 20191113
  8. AVASTIN [Concomitant]
     Active Substance: BEVACIZUMAB
     Dosage: Q 2 -WEEK, 4 OF 7 CYCLES
     Dates: start: 20190724, end: 20190724
  9. AVASTIN [Concomitant]
     Active Substance: BEVACIZUMAB
     Dosage: Q 2 -WEEK, 4 OF 7 CYCLES
     Dates: start: 20190821, end: 20190821
  10. AVASTIN [Concomitant]
     Active Substance: BEVACIZUMAB
     Dosage: Q 2 -WEEK, 4 OF 7 CYCLES
     Dates: start: 20190904, end: 20190904
  11. ULTRAM [Concomitant]
     Active Substance: TRAMADOL HYDROCHLORIDE
     Dosage: 50 MILLIGRAM, 2 TIMES A DAY
  12. CYANOCOBALAMIN. [Concomitant]
     Active Substance: CYANOCOBALAMIN
     Route: 048
  13. LOMUSTINE. [Concomitant]
     Active Substance: LOMUSTINE
  14. PRINIVIL [Suspect]
     Active Substance: LISINOPRIL
     Indication: HYPERTENSION
     Dosage: 10 MILLIGRAM, EVERY MORNING AND 5 MG EVERY AFTERNOON
     Route: 048
  15. AVASTIN [Concomitant]
     Active Substance: BEVACIZUMAB
     Dosage: Q 2 -WEEK, 4 OF 7 CYCLES
     Dates: start: 20190807, end: 20190807
  16. KEPPRA [Concomitant]
     Active Substance: LEVETIRACETAM
     Dosage: 1500 MILLIGRAM, Q PM
  17. AVASTIN [Concomitant]
     Active Substance: BEVACIZUMAB
     Dosage: 5MG/KG, EVERY 3 WEEKS, 1 OF 6 CYCLES
     Route: 042
     Dates: start: 20200226

REACTIONS (1)
  - Inappropriate schedule of product administration [Unknown]
